FAERS Safety Report 10915567 (Version 3)
Quarter: 2015Q2

REPORT INFORMATION
  Report Type: Spontaneous
  Country: US (occurrence: US)
  Receive Date: 20150316
  Receipt Date: 20150505
  Transmission Date: 20150821
  Serious: No
  Sender: FDA-Public Use
  Company Number: US-PFIZER INC-2015094323

PATIENT
  Age: 12 Year
  Sex: Male

DRUGS (1)
  1. QUILLIVANT XR [Suspect]
     Active Substance: METHYLPHENIDATE HYDROCHLORIDE
     Indication: ATTENTION DEFICIT/HYPERACTIVITY DISORDER
     Dosage: 4 ML, DAILY
     Route: 048
     Dates: start: 201409, end: 201501

REACTIONS (4)
  - Activities of daily living impaired [Recovered/Resolved]
  - Frustration [Recovered/Resolved]
  - Disturbance in attention [Recovered/Resolved]
  - Antisocial behaviour [Recovered/Resolved]
